FAERS Safety Report 4551215-3 (Version None)
Quarter: 2005Q1

REPORT INFORMATION
  Report Type: 
  Country: None (occurrence: None)
  Receive Date: 20050106
  Receipt Date: 20041230
  Transmission Date: 20050727
  Serious: Yes (Death, Hospitalization)
  Sender: FDA-Public Use
  Company Number: 2004EU002276

PATIENT
  Age: 42 Year
  Sex: Female

DRUGS (8)
  1. PROGRAF [Suspect]
     Indication: RENAL TRANSPLANT
     Dosage: 1.50MG, BID, ORAL
     Route: 048
     Dates: start: 20030315
  2. CELLCEPT [Suspect]
     Indication: RENAL TRANSPLANT
     Dosage: 500 MG, BID, ORAL
     Route: 048
     Dates: start: 20030315
  3. ARANESP [Suspect]
     Dosage: 30.00 UG, WEEKLY
     Dates: start: 20030315
  4. ATHYMIL (MIANSERIN HYDROCHLORIDE) TABLET, 30MG [Suspect]
     Dosage: 30.00 MG, UID/QD, ORAL
     Route: 048
     Dates: start: 20020615, end: 20041207
  5. AMLODIPINE BESYLATE [Suspect]
     Dosage: 5.00 MG, UID/QD, ORAL
     Route: 048
     Dates: start: 20030315
  6. COZAAR [Suspect]
     Dosage: 50.00 MG, UID/QD, ORAL
     Route: 048
     Dates: start: 20040615
  7. DETENSIEL (BISOPROLOL) TABLET, 10MG [Suspect]
     Dosage: UNKNOWN/D, ORAL
     Route: 048
     Dates: start: 20030315
  8. ALDACTONE [Suspect]
     Dosage: UNKNOWN/D, ORAL
     Route: 048
     Dates: start: 20040415, end: 20041205

REACTIONS (3)
  - EYELID OEDEMA [None]
  - FACE OEDEMA [None]
  - PRURITUS [None]
